FAERS Safety Report 9974895 (Version 1)
Quarter: 2014Q1

REPORT INFORMATION
  Report Type: Report from Study
  Country: US (occurrence: US)
  Receive Date: 20140306
  Receipt Date: 20140306
  Transmission Date: 20141002
  Serious: No
  Sender: FDA-Public Use
  Company Number: US-ABBVIE-13P-163-1155129-00

PATIENT
  Age: 66 Year
  Sex: Male

DRUGS (3)
  1. HUMIRA [Suspect]
     Indication: COLITIS ULCERATIVE
     Dates: start: 201309
  2. BISOPROLOL [Concomitant]
     Indication: HYPERTENSION
     Dosage: 6.25MG DAILY
     Route: 048
  3. FOLTEX [Concomitant]
     Indication: BLOOD TRIGLYCERIDES INCREASED
     Dosage: ONE DAILY

REACTIONS (3)
  - Injection site haemorrhage [Recovering/Resolving]
  - Injection site reaction [Recovering/Resolving]
  - Injection site vesicles [Recovering/Resolving]
